FAERS Safety Report 4973187-X (Version None)
Quarter: 2006Q2

REPORT INFORMATION
  Report Type: 
  Country: None (occurrence: None)
  Receive Date: 20060407
  Receipt Date: 20060329
  Transmission Date: 20061013
  Serious: Yes (Other)
  Sender: FDA-Public Use
  Company Number: 2006041076

PATIENT
  Age: 81 Year
  Sex: Female

DRUGS (1)
  1. BENGAY  MUSCLE PAIN NO ODOUR (NO ACTIVE INGREDIENT) [Suspect]
     Indication: MYALGIA
     Dosage: AT LEAST 3 TIMES DAILY, TOPICAL
     Route: 061

REACTIONS (3)
  - BEDRIDDEN [None]
  - CEREBROVASCULAR ACCIDENT [None]
  - OVERDOSE [None]
